FAERS Safety Report 5950561-6 (Version None)
Quarter: 2008Q4

REPORT INFORMATION
  Report Type: 
  Country: None (occurrence: None)
  Receive Date: 20081112
  Receipt Date: 20081104
  Transmission Date: 20090506
  Serious: Yes (Death, Hospitalization)
  Sender: FDA-Public Use
  Company Number: TR-ELI_LILLY_AND_COMPANY-TR200806005888

PATIENT
  Age: 79 Year
  Sex: Male

DRUGS (3)
  1. HUMALOG [Suspect]
     Indication: DIABETES MELLITUS
     Route: 058
     Dates: end: 20040101
  2. HUMALOG [Suspect]
     Dosage: UNK UNK, AS NEEDED
     Route: 058
     Dates: start: 20040101
  3. LANTUS [Concomitant]
     Indication: DIABETES MELLITUS
     Dosage: UNK UNK, AS NEEDED
     Route: 058
     Dates: start: 20080422

REACTIONS (1)
  - MYOCARDIAL INFARCTION [None]
